FAERS Safety Report 9614377 (Version 2)
Quarter: 2013Q4

REPORT INFORMATION
  Report Type: Report from Study
  Country: US (occurrence: US)
  Receive Date: 20131011
  Receipt Date: 20131029
  Transmission Date: 20140711
  Serious: Yes (Life-Threatening, Hospitalization, Other)
  Sender: FDA-Public Use
  Company Number: US-JNJFOC-20131007013

PATIENT
  Age: 14 Year
  Sex: Female

DRUGS (1)
  1. NUCYNTA ER [Suspect]
     Indication: PRODUCT USED FOR UNKNOWN INDICATION
     Route: 048

REACTIONS (10)
  - Overdose [Recovering/Resolving]
  - Suicide attempt [Recovering/Resolving]
  - Unresponsive to stimuli [Recovered/Resolved]
  - Convulsion [Recovered/Resolved]
  - Mydriasis [Recovering/Resolving]
  - Blood glucose increased [Recovering/Resolving]
  - Blood lactic acid increased [Recovering/Resolving]
  - Sinus tachycardia [Recovered/Resolved]
  - Stridor [Recovering/Resolving]
  - Vomiting [Recovering/Resolving]
